FAERS Safety Report 9559654 (Version 2)
Quarter: 2013Q3

REPORT INFORMATION
  Report Type: Report from Study
  Country: GB (occurrence: GB)
  Receive Date: 20130927
  Receipt Date: 20130927
  Transmission Date: 20140515
  Serious: Yes (Disabling)
  Sender: FDA-Public Use
  Company Number: PHHY2012GB107468

PATIENT
  Sex: 0

DRUGS (4)
  1. ALENDRONIC ACID [Suspect]
     Indication: OSTEOPOROSIS
     Dosage: 1 DF, QW
     Route: 048
     Dates: start: 201101
  2. CANDESARTAN CILEXETIL [Suspect]
     Indication: PROTEIN URINE
     Dosage: 8 MG, QD
     Route: 048
     Dates: start: 2008, end: 2008
  3. NOVOMIX [Concomitant]
  4. LANTUS [Concomitant]

REACTIONS (3)
  - Myalgia [Recovered/Resolved]
  - Back pain [Recovered/Resolved]
  - Muscle spasms [Recovered/Resolved]
